FAERS Safety Report 6435775-3 (Version None)
Quarter: 2009Q4

REPORT INFORMATION
  Report Type: 
  Country: None (occurrence: None)
  Receive Date: 20091111
  Receipt Date: 20091102
  Transmission Date: 20100525
  Serious: Yes (Hospitalization)
  Sender: FDA-Public Use
  Company Number: NZ-ASTRAZENECA-2009SE23619

PATIENT
  Age: 49 Year
  Sex: Female

DRUGS (2)
  1. LIGNOCAINE [Suspect]
     Dosage: SINGLE DOSE
     Dates: end: 20040921
  2. LORAZEPAM [Suspect]
     Route: 048
     Dates: start: 20040921, end: 20040921

REACTIONS (2)
  - DELIRIUM [None]
  - PARALYSIS [None]
